FAERS Safety Report 19936001 (Version 1)
Quarter: 2021Q4

REPORT INFORMATION
  Report Type: Spontaneous
  Country: US (occurrence: US)
  Receive Date: 20211008
  Receipt Date: 20211008
  Transmission Date: 20220303
  Serious: No
  Sender: FDA-Public Use
  Company Number: US-NEOPHARMA INC-000652

PATIENT

DRUGS (5)
  1. AMOXIL [Suspect]
     Active Substance: AMOXICILLIN
     Indication: Product used for unknown indication
  2. LEVOFLOXACIN [Suspect]
     Active Substance: LEVOFLOXACIN
     Indication: Product used for unknown indication
  3. SULFAMETHOXAZOLE\TRIMETHOPRIM [Suspect]
     Active Substance: SULFAMETHOXAZOLE\TRIMETHOPRIM
     Indication: Product used for unknown indication
  4. AROMASIN [Concomitant]
     Active Substance: EXEMESTANE
     Indication: Breast cancer female
  5. AROMASIN [Concomitant]
     Active Substance: EXEMESTANE
     Indication: Bone cancer

REACTIONS (2)
  - Nausea [Unknown]
  - Drug hypersensitivity [Unknown]
